FAERS Safety Report 10096110 (Version 1)
Quarter: 2014Q2

REPORT INFORMATION
  Report Type: Spontaneous
  Country: US (occurrence: None)
  Receive Date: 20140410
  Receipt Date: 20140410
  Transmission Date: 20141212
  Serious: Yes (Hospitalization)
  Sender: FDA-Public Use
  Company Number: 2013-384

PATIENT
  Age: 17 Year
  Sex: Female

DRUGS (4)
  1. CLOZAPINE [Suspect]
     Route: 048
     Dates: start: 20130718, end: 20130806
  2. ZYPREXA (OLANAZPINE) [Concomitant]
  3. DEPAKOTE (VALOPRATE SEMISODIUM) [Concomitant]
  4. LITHIUM (LITHIUM CARBONATE) TABLET, 300MG [Concomitant]

REACTIONS (2)
  - Pyrexia [None]
  - Hypertension [None]
